FAERS Safety Report 8007680 (Version 4)
Quarter: 2013Q3

REPORT INFORMATION
  Report Type: Report from Study
  Country: CZ (occurrence: CZ)
  Receive Date: 20110624
  Receipt Date: 20130730
  Transmission Date: 20140515
  Serious: Yes (Other)
  Sender: FDA-Public Use
  Company Number: CZ-PFIZER INC-2011135322

PATIENT
  Age: 65 Year
  Sex: Male

DRUGS (8)
  1. SUTENT [Suspect]
     Indication: METASTATIC RENAL CELL CARCINOMA
     Dosage: 50 MG, 4 WEEKS ON/ 2 WEEKS OFF
  2. SUTENT [Suspect]
     Dosage: 37.5 MG, UNK
  3. SUTENT [Suspect]
     Dosage: 25 MG, 3 WEEKS ON, 2 WEEKS OFF
  4. SUTENT [Suspect]
     Dosage: 12.5 MG, UNK
     Dates: end: 201112
  5. CLEXANE [Concomitant]
     Indication: THROMBOSIS
  6. EBRANTIL [Concomitant]
  7. LODOZ [Concomitant]
  8. EUPHYLLIN [Concomitant]

REACTIONS (6)
  - Mouth haemorrhage [Recovered/Resolved]
  - Thrombocytopenia [Unknown]
  - Influenza like illness [Unknown]
  - Yellow skin [Unknown]
  - Fatigue [Unknown]
  - Appetite disorder [Unknown]
